FAERS Safety Report 6034856-6 (Version None)
Quarter: 2009Q1

REPORT INFORMATION
  Report Type: 
  Country: None (occurrence: None)
  Receive Date: 20090108
  Receipt Date: 20090108
  Transmission Date: 20090719
  Serious: Yes (Hospitalization)
  Sender: FDA-Public Use
  Company Number: None

PATIENT
  Sex: Female
  Weight: 59.1 kg

DRUGS (13)
  1. COUMADIN [Suspect]
     Indication: ATRIAL FIBRILLATION
     Dosage: 2.5 MG SUN, T, W, F, SAT PO
     Route: 048
  2. CARTIA XT [Concomitant]
  3. CENTRUM SILVER [Concomitant]
  4. EVISTA [Concomitant]
  5. GABAPENTIN [Concomitant]
  6. LASIX [Concomitant]
  7. POTASSIUM CHLORIDE [Concomitant]
  8. LORAZEPAM [Concomitant]
  9. NORCO [Concomitant]
  10. PROTONIX [Concomitant]
  11. MILK OF MAGNESIA [Concomitant]
  12. SENOKOT [Concomitant]
  13. TRAZODONE HCL [Concomitant]

REACTIONS (3)
  - ANAEMIA OF CHRONIC DISEASE [None]
  - PROTHROMBIN TIME ABNORMAL [None]
  - URINARY TRACT INFECTION [None]
